FAERS Safety Report 20897557 (Version 1)
Quarter: 2022Q2

REPORT INFORMATION
  Report Type: Other
  Country: US (occurrence: None)
  Receive Date: 20220531
  Receipt Date: 20220531
  Transmission Date: 20220721
  Serious: Yes (Death)
  Sender: FDA-Public Use
  Company Number: US-ROCHE-3106343

PATIENT
  Sex: Male

DRUGS (4)
  1. TECENTRIQ [Suspect]
     Active Substance: ATEZOLIZUMAB
     Indication: Prostate cancer
     Dosage: INFUSE 1200MG INTRAVENOUSLY EVERY 3 WEEK(S)
     Route: 042
  2. TECENTRIQ [Suspect]
     Active Substance: ATEZOLIZUMAB
     Indication: Metastases to bone
  3. CARBOPLATIN [Concomitant]
     Active Substance: CARBOPLATIN
  4. CISPLATIN [Concomitant]
     Active Substance: CISPLATIN

REACTIONS (2)
  - Death [Fatal]
  - Off label use [Unknown]
